FAERS Safety Report 9953823 (Version 3)
Quarter: 2014Q1

REPORT INFORMATION
  Report Type: Report from Study
  Country: FR (occurrence: FR)
  Receive Date: 20140304
  Receipt Date: 20140324
  Transmission Date: 20141002
  Serious: Yes (Hospitalization)
  Sender: FDA-Public Use
  Company Number: FR-BAYER-2014-027376

PATIENT
  Age: 77 Year
  Sex: Male
  Weight: 82 kg

DRUGS (11)
  1. RIOCIGUAT (GUANYLATE CYCLASE STIMULATOR) [Suspect]
     Dosage: 2.5 MG, TID
     Route: 048
     Dates: start: 20131129
  2. ZANIDIP [Concomitant]
     Indication: HYPERTENSION
     Dosage: DAILY DOSE 20 MG
     Route: 048
     Dates: start: 201009
  3. JANUVIA [Concomitant]
     Indication: DIABETES MELLITUS
     Dosage: DAILY DOSE 100 MG
     Route: 048
     Dates: start: 20100831
  4. AMAREL [Concomitant]
     Indication: DIABETES MELLITUS
     Dosage: DAILY DOSE 5 MG
     Route: 048
     Dates: start: 20100831
  5. TAHOR [Concomitant]
     Indication: DYSLIPIDAEMIA
     Dosage: DAILY DOSE 10 MG
     Route: 048
     Dates: start: 2010
  6. TRIATEC [Concomitant]
     Indication: HYPERTENSION
     Dosage: DAILY DOSE 5 MG
     Route: 048
     Dates: start: 201009
  7. CORDARONE [Concomitant]
     Indication: TACHYCARDIA
     Dosage: DAILY DOSE 200 MG
     Route: 048
     Dates: start: 20131126
  8. INSULIN [Concomitant]
     Indication: DIABETES MELLITUS
     Dosage: UNK
     Route: 058
     Dates: start: 20100831
  9. FUROSEMIDE [Concomitant]
     Indication: HYPERTENSION
     Dosage: DAILY DOSE 40 MG
     Route: 048
     Dates: start: 20131130
  10. DOMPERIDONE [Concomitant]
     Indication: VOMITING
     Dosage: DAILY DOSE 30 MG
     Route: 048
     Dates: start: 20131130
  11. FLUINDIONE [Concomitant]
     Indication: PULMONARY ARTERIAL HYPERTENSION
     Dosage: INR DEPENDENT, PRN
     Route: 048
     Dates: start: 20131226

REACTIONS (1)
  - Oedema peripheral [Recovered/Resolved]
